FAERS Safety Report 17934245 (Version 1)
Quarter: 2020Q2

REPORT INFORMATION
  Report Type: Spontaneous
  Country: JP (occurrence: BR)
  Receive Date: 20200624
  Receipt Date: 20200624
  Transmission Date: 20200714
  Serious: Yes (Other)
  Sender: FDA-Public Use
  Company Number: JP-SUN PHARMACEUTICAL INDUSTRIES LTD-2020R1-250810

PATIENT
  Age: 35 Year
  Sex: Female

DRUGS (1)
  1. DUAC [Suspect]
     Active Substance: BENZOYL PEROXIDE\CLINDAMYCIN PHOSPHATE
     Indication: ACNE
     Dosage: UNK, QD
     Route: 065
     Dates: start: 20200608

REACTIONS (7)
  - Application site reaction [Unknown]
  - Application site pruritus [Unknown]
  - Application site pain [Unknown]
  - Application site vesicles [Unknown]
  - Condition aggravated [Unknown]
  - Application site erythema [Unknown]
  - Hypersensitivity [Unknown]
